FAERS Safety Report 9859301 (Version 2)
Quarter: 2014Q1

REPORT INFORMATION
  Report Type: Spontaneous
  Country: AU (occurrence: None)
  Receive Date: 20140128
  Receipt Date: 20140218
  Transmission Date: 20141002
  Serious: Yes (Death)
  Sender: FDA-Public Use
  Company Number: AUR-APL-2014-00558

PATIENT
  Age: 52 Year
  Sex: Male

DRUGS (14)
  1. LAMOTRIGINE [Suspect]
     Indication: PRODUCT USED FOR UNKNOWN INDICATION
  2. DULOXETINE (DULOXETINE) (DULOXETINE) [Suspect]
     Indication: PRODUCT USED FOR UNKNOWN INDICATION
  3. ARIPIPRAZOLE (ARIPIPRAZOLE) [Suspect]
     Indication: PRODUCT USED FOR UNKNOWN INDICATION
  4. CHLORPHENIRAMINE [Suspect]
     Indication: PRODUCT USED FOR UNKNOWN INDICATION
  5. CODEINE (CODEINE) [Suspect]
     Indication: PRODUCT USED FOR UNKNOWN INDICATION
  6. DIAZEPAM (DIAZEPAM) [Suspect]
     Indication: PRODUCT USED FOR UNKNOWN INDICATION
  7. METHAMPHETAMINE (METAMFETAMINE HYDROCHLORIDE) [Suspect]
     Indication: PRODUCT USED FOR UNKNOWN INDICATION
  8. METOCLOPRAMINE HYDROCHLORIDE [Suspect]
     Indication: PRODUCT USED FOR UNKNOWN INDICATION
  9. MORPHINE [Suspect]
     Indication: PRODUCT USED FOR UNKNOWN INDICATION
  10. NITRAZEPAM (NITRAZEPAM) [Suspect]
     Indication: PRODUCT USED FOR UNKNOWN INDICATION
  11. PARACETAMOL (PARACETAMOL) [Suspect]
     Indication: PRODUCT USED FOR UNKNOWN INDICATION
  12. PROPRANOLOL (PROPRANOLOL) [Suspect]
     Indication: PRODUCT USED FOR UNKNOWN INDICATION
  13. PROPOXYPHENE (DEXTROPROPOXYPHENE) [Suspect]
     Indication: PRODUCT USED FOR UNKNOWN INDICATION
  14. PHOLCODINE [Suspect]
     Indication: PRODUCT USED FOR UNKNOWN INDICATION

REACTIONS (4)
  - Cardiomegaly [None]
  - Arteriosclerosis coronary artery [None]
  - Toxicity to various agents [None]
  - Drug interaction [None]
